FAERS Safety Report 21123668 (Version 1)
Quarter: 2022Q3

REPORT INFORMATION
  Report Type: Spontaneous
  Country: US (occurrence: US)
  Receive Date: 20220725
  Receipt Date: 20220725
  Transmission Date: 20221026
  Serious: No
  Sender: FDA-Public Use
  Company Number: US-drreddys-SPO/USA/22/0152186

PATIENT
  Age: 15 Year
  Sex: Female

DRUGS (3)
  1. ZENATANE [Suspect]
     Active Substance: ISOTRETINOIN
     Indication: Product used for unknown indication
     Dosage: RMA ISSUE DATE: 18 JANUARY 2022 11:35:42 AM; 23 FEBRUARY 2022 10:16:21 AM
  2. ZENATANE [Suspect]
     Active Substance: ISOTRETINOIN
     Dosage: RMA ISSUE DATE: 24 MARCH 2022 05:01:57 PM; 29 APRIL 2022 01:25:19 PM; 03 JUNE 2022 10:07:49 AM
  3. ZENATANE [Suspect]
     Active Substance: ISOTRETINOIN
     Dosage: RMA ISSUE DATE: 24 MARCH 2022 05:01:57 PM; 29 APRIL 2022 01:25:19 PM; 03 JUNE 2022 10:07:49 AM

REACTIONS (1)
  - Treatment noncompliance [Unknown]
